FAERS Safety Report 20742462 (Version 2)
Quarter: 2022Q2

REPORT INFORMATION
  Report Type: Spontaneous
  Country: US (occurrence: US)
  Receive Date: 20220424
  Receipt Date: 20220601
  Transmission Date: 20220720
  Serious: No
  Sender: FDA-Public Use
  Company Number: US-JNJFOC-20220437609

PATIENT
  Age: 83 Year
  Sex: Female

DRUGS (5)
  1. WOMENS ROGAINE UNSCENTED [Suspect]
     Active Substance: MINOXIDIL
     Indication: Product used for unknown indication
     Dosage: HALF A CUP APPLIED ONCE A DAY ON SCALP
     Route: 065
     Dates: start: 20220411
  2. ASPIRIN [Concomitant]
     Active Substance: ASPIRIN
     Indication: Chronic obstructive pulmonary disease
     Route: 065
     Dates: start: 1995
  3. ASMANEX [Concomitant]
     Active Substance: MOMETASONE FUROATE
     Indication: Chronic obstructive pulmonary disease
     Route: 065
     Dates: start: 1995
  4. LOSARTAN [Concomitant]
     Active Substance: LOSARTAN
     Indication: Hypertension
     Route: 065
     Dates: start: 1995
  5. PROPIN [OMEPRAZOLE] [Concomitant]
     Indication: Product used for unknown indication
     Route: 065
     Dates: start: 1995

REACTIONS (2)
  - Peripheral swelling [Not Recovered/Not Resolved]
  - Application site irritation [Unknown]

NARRATIVE: CASE EVENT DATE: 20220417
